FAERS Safety Report 23230405 (Version 1)
Quarter: 2023Q4

REPORT INFORMATION
  Report Type: Spontaneous
  Country: TW (occurrence: TW)
  Receive Date: 20231127
  Receipt Date: 20231127
  Transmission Date: 20240110
  Serious: Yes (Hospitalization)
  Sender: FDA-Public Use
  Company Number: TW-002147023-NVSC2023TW245026

PATIENT
  Age: 73 Year
  Sex: Female

DRUGS (5)
  1. CEFTRIAXONE [Suspect]
     Active Substance: CEFTRIAXONE\CEFTRIAXONE SODIUM
     Indication: Antibiotic therapy
     Dosage: 2 G, QD (INTRAVENOUS DAILY)
     Route: 042
     Dates: start: 20210314, end: 20210316
  2. CEFTRIAXONE [Suspect]
     Active Substance: CEFTRIAXONE\CEFTRIAXONE SODIUM
     Indication: Pyelonephritis
  3. CEFTRIAXONE [Suspect]
     Active Substance: CEFTRIAXONE\CEFTRIAXONE SODIUM
     Indication: Urosepsis
  4. FLUCONAZOLE [Suspect]
     Active Substance: FLUCONAZOLE
     Indication: Antibiotic therapy
     Dosage: 1 G, (ADMINISTERED INTRAVENOUS EVERY 8 HOURS)
     Route: 042
     Dates: start: 20210316
  5. FLUCONAZOLE [Suspect]
     Active Substance: FLUCONAZOLE
     Dosage: 2 G, (ADMINISTERED INTRAVENOUS EVERY 8 HOURS)
     Route: 042

REACTIONS (3)
  - Trichoglossia [Recovered/Resolved]
  - Constipation [Unknown]
  - Abdominal distension [Unknown]

NARRATIVE: CASE EVENT DATE: 20210316
